FAERS Safety Report 17635772 (Version 1)
Quarter: 2020Q2

REPORT INFORMATION
  Report Type: Spontaneous
  Country: US (occurrence: US)
  Receive Date: 20200407
  Receipt Date: 20200407
  Transmission Date: 20200713
  Serious: No
  Sender: FDA-Public Use
  Company Number: US-ASTRAZENECA-2020SE46082

PATIENT
  Sex: Male
  Weight: 7.8 kg

DRUGS (4)
  1. SYNAGIS [Suspect]
     Active Substance: PALIVIZUMAB
     Indication: LOW BIRTH WEIGHT BABY
     Route: 030
     Dates: start: 20191224
  2. ENFAMIL [Concomitant]
     Active Substance: AMINO ACIDS\CARBOHYDRATES\MINERALS\VITAMINS
  3. POLY-VI-SOL IRON [Concomitant]
     Dosage: 750-35/ML DROPS
  4. VITAMIN D3 [Concomitant]
     Active Substance: CHOLECALCIFEROL
     Dosage: 10(400)/ML DROPS

REACTIONS (1)
  - Adverse drug reaction [Unknown]
